FAERS Safety Report 9794609 (Version 1)
Quarter: 2014Q1

REPORT INFORMATION
  Report Type: Spontaneous
  Country: US (occurrence: US)
  Receive Date: 20140102
  Receipt Date: 20140102
  Transmission Date: 20141002
  Serious: Yes (Hospitalization, Other)
  Sender: FDA-Public Use
  Company Number: US-GLAXOSMITHKLINE-A1054803A

PATIENT
  Age: 15 Year
  Sex: Male

DRUGS (4)
  1. LAMICTAL [Suspect]
     Indication: CONVULSION
     Route: 048
     Dates: start: 2011
  2. KEPPRA [Concomitant]
  3. CLOBAZAM [Concomitant]
  4. ZONISAMIDE [Concomitant]

REACTIONS (2)
  - Meningitis aseptic [Not Recovered/Not Resolved]
  - Surgery [Unknown]
